FAERS Safety Report 8854119 (Version 2)
Quarter: 2013Q1

REPORT INFORMATION
  Report Type: Spontaneous
  Country: US (occurrence: None)
  Receive Date: 20121018
  Receipt Date: 20130329
  Transmission Date: 20140127
  Serious: Yes (Hospitalization)
  Sender: FDA-Public Use
  Company Number: AUR-APL-2012-04380

PATIENT
  Age: 22 Year
  Sex: Male

DRUGS (1)
  1. HYDROCODONE + ACETAMINOPHEN [Suspect]
     Indication: PRODUCT USED FOR UNKNOWN INDICATION
     Dosage: 15-25 TABLETS (5 MG/500 MG), ORAL
     Route: 048
     Dates: start: 20100105

REACTIONS (6)
  - Intentional overdose [None]
  - Suicide attempt [None]
  - Nausea [None]
  - Abdominal pain [None]
  - Alanine aminotransferase increased [None]
  - Aspartate aminotransferase increased [None]
